FAERS Safety Report 15967271 (Version 2)
Quarter: 2019Q2

REPORT INFORMATION
  Report Type: Report from Study
  Country: None (occurrence: ES)
  Receive Date: 20190215
  Receipt Date: 20190412
  Transmission Date: 20190711
  Serious: No
  Sender: FDA-Public Use
  Company Number: ES-BIOVITRUM-2019ES0242

PATIENT
  Sex: Male
  Weight: 49.4 kg

DRUGS (2)
  1. ORFADIN [Suspect]
     Active Substance: NITISINONE
     Indication: TYROSINAEMIA
     Dosage: DOSE: 0.69 MG/KG
     Dates: start: 20170314, end: 20180312
  2. ORFADIN [Suspect]
     Active Substance: NITISINONE
     Dosage: DOSE: 0.81 MG/KG

REACTIONS (2)
  - Succinylacetone increased [Unknown]
  - Amino acid level increased [Unknown]
